FAERS Safety Report 9487113 (Version 2)
Quarter: 2013Q4

REPORT INFORMATION
  Report Type: Report from Study
  Country: JP (occurrence: JP)
  Receive Date: 20130829
  Receipt Date: 20131024
  Transmission Date: 20140711
  Serious: No
  Sender: FDA-Public Use
  Company Number: JP-EISAI INC-E2020-12801-SOL-JP

PATIENT
  Age: 65 Year
  Sex: Male

DRUGS (11)
  1. ARICEPT [Suspect]
     Indication: DEMENTIA ALZHEIMER^S TYPE
     Route: 048
     Dates: start: 20120209, end: 20120215
  2. ARICEPT [Suspect]
     Route: 048
     Dates: start: 20130216
  3. NIFEDIPINE CR [Concomitant]
     Route: 048
  4. DIOVAN [Concomitant]
     Route: 048
  5. PLAVIX [Concomitant]
     Route: 048
  6. JANUVIA [Concomitant]
     Route: 048
  7. TENORMIN [Concomitant]
     Route: 048
  8. ACTOS [Concomitant]
     Route: 048
  9. BASEN OD [Concomitant]
     Route: 048
  10. PLETAAL OD [Concomitant]
     Route: 048
  11. PINATOS [Concomitant]
     Route: 048

REACTIONS (2)
  - Cardiac failure chronic [Recovered/Resolved]
  - Aortic valve incompetence [Recovering/Resolving]
